FAERS Safety Report 5598319-4 (Version None)
Quarter: 2008Q1

REPORT INFORMATION
  Report Type: 
  Country: None (occurrence: None)
  Receive Date: 20080122
  Receipt Date: 20080111
  Transmission Date: 20080703
  Serious: Yes (Hospitalization, Disabling)
  Sender: FDA-Public Use
  Company Number: B0347803A

PATIENT
  Age: 40 Year
  Sex: Male
  Weight: 78 kg

DRUGS (5)
  1. PAXIL [Suspect]
     Indication: DEPRESSION
     Route: 048
     Dates: start: 20010816, end: 20020203
  2. AMOXAN [Suspect]
     Indication: DEPRESSION
     Route: 048
     Dates: end: 20020301
  3. CLOMIPRAMINE HYDROCHLORIDE [Suspect]
  4. LITHIUM CARBONATE [Concomitant]
     Indication: DEPRESSION
     Route: 048
     Dates: start: 20010801, end: 20020206
  5. TRYPTANOL [Concomitant]
     Indication: DEPRESSION
     Dosage: 10MG THREE TIMES PER DAY
     Route: 048
     Dates: start: 20020131, end: 20020211

REACTIONS (11)
  - ACTIVATION SYNDROME [None]
  - AGGRESSION [None]
  - ANGER [None]
  - DRUG INTERACTION [None]
  - EUPHORIC MOOD [None]
  - FEELING ABNORMAL [None]
  - GAMBLING [None]
  - INSOMNIA [None]
  - IRRITABILITY [None]
  - MANIA [None]
  - MOOD ALTERED [None]
